FAERS Safety Report 22007478 (Version 2)
Quarter: 2023Q1

REPORT INFORMATION
  Report Type: Spontaneous
  Country: IT (occurrence: IT)
  Receive Date: 20230218
  Receipt Date: 20230223
  Transmission Date: 20230417
  Serious: Yes (Death, Other)
  Sender: FDA-Public Use
  Company Number: IT-JNJFOC-20230207194

PATIENT
  Age: 88 Year
  Sex: Female

DRUGS (3)
  1. MELPHALAN [Suspect]
     Active Substance: MELPHALAN
     Indication: Plasma cell myeloma
     Dosage: 2 MILLIGRAM, ONCE A DAY
     Route: 065
     Dates: start: 20190730, end: 20200201
  2. PREDNISONE [Suspect]
     Active Substance: PREDNISONE
     Indication: Plasma cell myeloma
     Dosage: 75 MILLIGRAM, ONCE A DAY
     Route: 065
     Dates: start: 20190730, end: 20200201
  3. VELCADE [Suspect]
     Active Substance: BORTEZOMIB
     Indication: Plasma cell myeloma
     Dosage: 2 MILLIGRAM, ONCE A DAY
     Route: 065
     Dates: start: 20190730, end: 20190830

REACTIONS (2)
  - Septic shock [Fatal]
  - Cerebral ischaemia [Fatal]
